FAERS Safety Report 8128795-4 (Version None)
Quarter: 2012Q1

REPORT INFORMATION
  Report Type: 
  Country: None (occurrence: None)
  Receive Date: 20120210
  Receipt Date: 20110520
  Transmission Date: 20120608
  Serious: Yes (Other)
  Sender: FDA-Public Use
  Company Number: US-BRISTOL-MYERS SQUIBB COMPANY-15579337

PATIENT
  Age: 43 Year
  Sex: Male

DRUGS (9)
  1. FISH OIL [Concomitant]
  2. VOLTAREN [Concomitant]
     Route: 061
  3. CALCIUM [Concomitant]
  4. ORENCIA [Suspect]
     Indication: PSORIATIC ARTHROPATHY
     Dosage: NO OF INFUSION-2.
     Route: 042
     Dates: start: 20110228
  5. MULTI-VITAMIN [Concomitant]
  6. PREDNISONE TAB [Concomitant]
  7. ORENCIA [Suspect]
     Indication: RHEUMATOID ARTHRITIS
     Dosage: NO OF INFUSION-2.
     Route: 042
     Dates: start: 20110228
  8. ORENCIA [Suspect]
     Indication: POLYARTHRITIS
     Dosage: NO OF INFUSION-2.
     Route: 042
     Dates: start: 20110228
  9. DESLORATADINE [Concomitant]
     Dosage: STRENGTH-DESLORATADINE 0.05%

REACTIONS (6)
  - CHILLS [None]
  - FLUSHING [None]
  - BACK PAIN [None]
  - CHEST PAIN [None]
  - HYPERHIDROSIS [None]
  - BLOOD PRESSURE INCREASED [None]
